FAERS Safety Report 21628639 (Version 1)
Quarter: 2022Q4

REPORT INFORMATION
  Report Type: Spontaneous
  Country: US (occurrence: US)
  Receive Date: 20221122
  Receipt Date: 20221122
  Transmission Date: 20230112
  Serious: No
  Sender: FDA-Public Use
  Company Number: US-BEH-2022152025

PATIENT
  Sex: Female

DRUGS (41)
  1. HIZENTRA [Suspect]
     Active Substance: HUMAN IMMUNOGLOBULIN G
     Indication: Immunodeficiency
     Dosage: 30 GRAM, QOW
     Route: 058
     Dates: start: 20211210
  2. AZITHROMYCIN [Concomitant]
     Active Substance: AZITHROMYCIN
  3. BOTOX [Concomitant]
     Active Substance: ONABOTULINUMTOXINA
  4. BOTOX [Concomitant]
     Active Substance: ONABOTULINUMTOXINA
  5. CLARITHROMYCIN [Concomitant]
     Active Substance: CLARITHROMYCIN
  6. CLONAZEPAM [Concomitant]
     Active Substance: CLONAZEPAM
  7. CYCLOBENZAPRINE [Concomitant]
     Active Substance: CYCLOBENZAPRINE
  8. CYCLOBENZAPRINE [Concomitant]
     Active Substance: CYCLOBENZAPRINE
  9. DESONIDE [Concomitant]
     Active Substance: DESONIDE
  10. DEXAMETHASONE [Concomitant]
     Active Substance: DEXAMETHASONE
  11. EPINEPHRINE [Concomitant]
     Active Substance: EPINEPHRINE
  12. FLUCONAZOLE [Concomitant]
     Active Substance: FLUCONAZOLE
  13. FLUOCINONIDE [Concomitant]
     Active Substance: FLUOCINONIDE
  14. FUROSEMIDE [Concomitant]
     Active Substance: FUROSEMIDE
  15. HYDROCORTISONE [Concomitant]
     Active Substance: HYDROCORTISONE
  16. HYQVIA [Concomitant]
     Active Substance: HUMAN IMMUNOGLOBULIN G\HYALURONIDASE RECOMBINANT HUMAN
  17. LEVOTHYROXINE [Concomitant]
     Active Substance: LEVOTHYROXINE
  18. LIDOCAINE\PRILOCAINE [Concomitant]
     Active Substance: LIDOCAINE\PRILOCAINE
  19. LIDOCAINE\PRILOCAINE [Concomitant]
     Active Substance: LIDOCAINE\PRILOCAINE
  20. LOSARTAN POTASSIUM [Concomitant]
     Active Substance: LOSARTAN POTASSIUM
  21. LOSARTAN POTASSIUM [Concomitant]
     Active Substance: LOSARTAN POTASSIUM
  22. LOTEMAX [Concomitant]
     Active Substance: LOTEPREDNOL ETABONATE
  23. METHYLPREDNISOLONE [Concomitant]
     Active Substance: METHYLPREDNISOLONE
  24. METOPROLOL SUCCINATE [Concomitant]
     Active Substance: METOPROLOL SUCCINATE
  25. NP THYROID [Concomitant]
     Active Substance: LEVOTHYROXINE\LIOTHYRONINE
  26. NP THYROID [Concomitant]
     Active Substance: LEVOTHYROXINE\LIOTHYRONINE
  27. NP THYROID [Concomitant]
     Active Substance: LEVOTHYROXINE\LIOTHYRONINE
  28. ONDANSETRON [Concomitant]
     Active Substance: ONDANSETRON
  29. PANTOPRAZOLE [Concomitant]
     Active Substance: PANTOPRAZOLE
  30. PIMECROLIMUS [Concomitant]
     Active Substance: PIMECROLIMUS
  31. POTASSIUM CHLORIDE [Concomitant]
     Active Substance: POTASSIUM CHLORIDE
  32. PROMETHAZINE [Concomitant]
     Active Substance: PROMETHAZINE HYDROCHLORIDE
  33. RESTASIS [Concomitant]
     Active Substance: CYCLOSPORINE
  34. RIZATRIPTAN [Concomitant]
     Active Substance: RIZATRIPTAN
  35. TACROLIMUS [Concomitant]
     Active Substance: TACROLIMUS
  36. TRETINOIN [Concomitant]
     Active Substance: TRETINOIN
  37. TRETINOIN [Concomitant]
     Active Substance: TRETINOIN
  38. VENLAFAXINE [Concomitant]
     Active Substance: VENLAFAXINE HYDROCHLORIDE
  39. VITAMIN D NOS [Concomitant]
     Active Substance: VITAMIN D NOS
  40. XELJANZ XR [Concomitant]
     Active Substance: TOFACITINIB CITRATE
  41. XELJANZ XR [Concomitant]
     Active Substance: TOFACITINIB CITRATE

REACTIONS (1)
  - Sinusitis [Not Recovered/Not Resolved]
